FAERS Safety Report 7012156-5 (Version None)
Quarter: 2010Q3

REPORT INFORMATION
  Report Type: 
  Country: None (occurrence: None)
  Receive Date: 20100922
  Receipt Date: 20100922
  Transmission Date: 20110219
  Serious: Yes (Other)
  Sender: FDA-Public Use
  Company Number: None

PATIENT
  Age: 61 Year
  Sex: Female
  Weight: 68.9467 kg

DRUGS (2)
  1. PILOCARPINE HYDROCHLORIDE [Suspect]
     Indication: DRY EYE
     Dosage: 30MG PER DAY
     Dates: start: 20100827
  2. HOMEOPATHIC MEDICINES [Concomitant]

REACTIONS (7)
  - ABDOMINAL DISCOMFORT [None]
  - DIZZINESS [None]
  - DRY EYE [None]
  - GAIT DISTURBANCE [None]
  - INCOHERENT [None]
  - SOMNOLENCE [None]
  - VERTIGO [None]
